FAERS Safety Report 5804623-4 (Version None)
Quarter: 2008Q3

REPORT INFORMATION
  Report Type: 
  Country: None (occurrence: None)
  Receive Date: 20080709
  Receipt Date: 20080703
  Transmission Date: 20090109
  Serious: Yes (Other)
  Sender: FDA-Public Use
  Company Number: BR-ROCHE-574529

PATIENT
  Sex: Female

DRUGS (1)
  1. RIVOTRIL [Suspect]
     Indication: DRUG USE FOR UNKNOWN INDICATION
     Route: 065
     Dates: start: 20020101

REACTIONS (4)
  - DIABETES INSIPIDUS [None]
  - FACE OEDEMA [None]
  - HEADACHE [None]
  - PITUITARY TUMOUR REMOVAL [None]
